FAERS Safety Report 10722669 (Version 2)
Quarter: 2015Q1

REPORT INFORMATION
  Report Type: Spontaneous
  Country: US (occurrence: US)
  Receive Date: 20150120
  Receipt Date: 20150325
  Transmission Date: 20150721
  Serious: Yes (Hospitalization, Other)
  Sender: FDA-Public Use
  Company Number: US-GLAXOSMITHKLINE-US2015GSK005051

PATIENT
  Age: 65 Year

DRUGS (3)
  1. ARZERRA [Suspect]
     Active Substance: OFATUMUMAB
     Indication: CHRONIC LYMPHOCYTIC LEUKAEMIA
     Dosage: 300 MG, ONCE PER 28 DAY CYCLE
     Route: 042
     Dates: start: 20120621, end: 20121115
  2. BENDAMUSTINE [Suspect]
     Active Substance: BENDAMUSTINE
     Indication: CHRONIC LYMPHOCYTIC LEUKAEMIA
     Dosage: 70MG/M2, 2 DAYS PER 28 DAY CYCLE
     Route: 042
     Dates: start: 20120621, end: 20121115
  3. PENTOSTATIN. [Suspect]
     Active Substance: PENTOSTATIN
     Indication: CHRONIC LYMPHOCYTIC LEUKAEMIA
     Dosage: 4MG/M2, ONCE PER 28 DAY CYCLE
     Route: 042
     Dates: start: 20120621, end: 20121115

REACTIONS (2)
  - Tumour lysis syndrome [Unknown]
  - Sinusitis [Unknown]

NARRATIVE: CASE EVENT DATE: 20120623
